FAERS Safety Report 9405076 (Version 1)
Quarter: 2013Q3

REPORT INFORMATION
  Report Type: Spontaneous
  Country: US (occurrence: US)
  Receive Date: 20130717
  Receipt Date: 20130717
  Transmission Date: 20140515
  Serious: Yes (Hospitalization)
  Sender: FDA-Public Use
  Company Number: US-BRISTOL-MYERS SQUIBB COMPANY-18896159

PATIENT
  Age: 44 Year
  Sex: Male

DRUGS (5)
  1. YERVOY [Suspect]
     Indication: METASTATIC MALIGNANT MELANOMA
  2. KEPPRA [Concomitant]
     Dosage: Q 12
  3. MORPHINE [Concomitant]
     Dosage: Q 4
     Route: 042
  4. ZOFRAN [Concomitant]
     Dosage: Q 4
     Route: 042
  5. ATIVAN [Concomitant]

REACTIONS (1)
  - Intracranial tumour haemorrhage [Unknown]
